FAERS Safety Report 17800842 (Version 2)
Quarter: 2020Q2

REPORT INFORMATION
  Report Type: Report from Study
  Country: US (occurrence: US)
  Receive Date: 20200518
  Receipt Date: 20200618
  Transmission Date: 20200714
  Serious: Yes (Other)
  Sender: FDA-Public Use
  Company Number: US-EUSA PHARMA (UK) LIMITED-2020US000105

PATIENT
  Age: 39 Year
  Sex: Female
  Weight: 61.24 kg

DRUGS (3)
  1. SILTUXIMAB [Suspect]
     Active Substance: SILTUXIMAB
     Dosage: UNK
     Route: 065
     Dates: start: 20191107, end: 20191217
  2. SILTUXIMAB [Suspect]
     Active Substance: SILTUXIMAB
     Indication: CASTLEMAN^S DISEASE
     Dosage: UNK
     Route: 065
     Dates: start: 20190904, end: 20191105
  3. SILTUXIMAB [Suspect]
     Active Substance: SILTUXIMAB
     Dosage: UNK
     Route: 065
     Dates: start: 20191219, end: 20200318

REACTIONS (1)
  - Neuropathy peripheral [Recovering/Resolving]

NARRATIVE: CASE EVENT DATE: 20200101
